FAERS Safety Report 10970477 (Version 1)
Quarter: 2015Q1

REPORT INFORMATION
  Report Type: Spontaneous
  Country: US (occurrence: None)
  Receive Date: 20150330
  Receipt Date: 20150330
  Transmission Date: 20150721
  Serious: Yes (Disabling, Other)
  Sender: FDA-Public Use
  Company Number: None

PATIENT
  Age: 53 Year
  Sex: Female
  Weight: 56.7 kg

DRUGS (2)
  1. CENTRUM SILVER [Concomitant]
     Active Substance: VITAMINS
  2. MELOXICAM. [Suspect]
     Active Substance: MELOXICAM
     Indication: MUSCULOSKELETAL PAIN
     Route: 048

REACTIONS (2)
  - Transient ischaemic attack [None]
  - Hypertension [None]

NARRATIVE: CASE EVENT DATE: 20150128
